FAERS Safety Report 6330194-2 (Version None)
Quarter: 2009Q3

REPORT INFORMATION
  Report Type: 
  Country: None (occurrence: None)
  Receive Date: 20090827
  Receipt Date: 20090814
  Transmission Date: 20100115
  Serious: Yes (Other)
  Sender: FDA-Public Use
  Company Number: GB-RANBAXY-2009RR-26530

PATIENT
  Age: 18 Year
  Sex: Female

DRUGS (4)
  1. ACYCLOVIR [Suspect]
     Indication: VULVAL DISORDER
  2. COMBIVIR [Concomitant]
     Indication: HIV INFECTION
     Dosage: UNK
     Dates: end: 20040501
  3. NEVIRAPINE [Concomitant]
     Indication: HIV INFECTION
     Dosage: UNK
     Dates: end: 20040501
  4. VALACYCLOVIR HCL [Concomitant]
     Indication: HIV INFECTION
     Dosage: 1 G, BID

REACTIONS (1)
  - DRUG RESISTANCE [None]
